FAERS Safety Report 20454535 (Version 2)
Quarter: 2022Q3

REPORT INFORMATION
  Report Type: Report from Study
  Country: FR (occurrence: FR)
  Receive Date: 20220210
  Receipt Date: 20220718
  Transmission Date: 20221026
  Serious: Yes (Other)
  Sender: FDA-Public Use
  Company Number: FR-TAKEDA-FR201945893

PATIENT
  Age: 43 Year
  Sex: Male

DRUGS (24)
  1. TEDUGLUTIDE [Suspect]
     Active Substance: TEDUGLUTIDE
     Indication: Short-bowel syndrome
     Dosage: 4.55 MILLIGRAM, QD
     Route: 042
     Dates: start: 20180219, end: 20180302
  2. TEDUGLUTIDE [Suspect]
     Active Substance: TEDUGLUTIDE
     Indication: Short-bowel syndrome
     Dosage: 4.55 MILLIGRAM, QD
     Route: 042
     Dates: start: 20180219, end: 20180302
  3. TEDUGLUTIDE [Suspect]
     Active Substance: TEDUGLUTIDE
     Indication: Short-bowel syndrome
     Dosage: 4.55 MILLIGRAM, QD
     Route: 042
     Dates: start: 20180219, end: 20180302
  4. TEDUGLUTIDE [Suspect]
     Active Substance: TEDUGLUTIDE
     Indication: Short-bowel syndrome
     Dosage: 4.55 MILLIGRAM, QD
     Route: 042
     Dates: start: 20180219, end: 20180302
  5. TEDUGLUTIDE [Suspect]
     Active Substance: TEDUGLUTIDE
     Dosage: 1 MILLIGRAM, QD
     Route: 042
     Dates: start: 20210518, end: 202105
  6. TEDUGLUTIDE [Suspect]
     Active Substance: TEDUGLUTIDE
     Dosage: 1 MILLIGRAM, QD
     Route: 042
     Dates: start: 20210518, end: 202105
  7. TEDUGLUTIDE [Suspect]
     Active Substance: TEDUGLUTIDE
     Dosage: 1 MILLIGRAM, QD
     Route: 042
     Dates: start: 20210518, end: 202105
  8. TEDUGLUTIDE [Suspect]
     Active Substance: TEDUGLUTIDE
     Dosage: 1 MILLIGRAM, QD
     Route: 042
     Dates: start: 20210518, end: 202105
  9. TEDUGLUTIDE [Suspect]
     Active Substance: TEDUGLUTIDE
     Dosage: 1 MILLIGRAM, QD
     Route: 042
     Dates: start: 20220120, end: 20220210
  10. TEDUGLUTIDE [Suspect]
     Active Substance: TEDUGLUTIDE
     Dosage: 1 MILLIGRAM, QD
     Route: 042
     Dates: start: 20220120, end: 20220210
  11. TEDUGLUTIDE [Suspect]
     Active Substance: TEDUGLUTIDE
     Dosage: 1 MILLIGRAM, QD
     Route: 042
     Dates: start: 20220120, end: 20220210
  12. TEDUGLUTIDE [Suspect]
     Active Substance: TEDUGLUTIDE
     Dosage: 1 MILLIGRAM, QD
     Route: 042
     Dates: start: 20220120, end: 20220210
  13. FUSIDIC ACID [Concomitant]
     Active Substance: FUSIDIC ACID
     Indication: Antibiotic prophylaxis
     Dosage: 1 DOSAGE FORM
     Route: 061
     Dates: start: 201901
  14. ECONAZOLE [Concomitant]
     Active Substance: ECONAZOLE
     Indication: Psoriasis
     Dosage: 1 DOSAGE FORM, QD
     Route: 061
     Dates: start: 201901
  15. Locopred [Concomitant]
     Indication: Psoriasis
     Dosage: 1 DOSAGE FORM, QD
     Route: 061
     Dates: start: 201901
  16. INTERLEUKIN NOS [Concomitant]
     Active Substance: INTERLEUKIN NOS
     Indication: Psoriasis
     Dosage: 1 MILLIGRAM
     Route: 065
     Dates: start: 201901
  17. AUGMENTIN [Concomitant]
     Active Substance: AMOXICILLIN\CLAVULANATE POTASSIUM
     Indication: Anti-infective therapy
     Dosage: 1000 MILLIGRAM, TID
     Route: 042
     Dates: start: 20160304, end: 201603
  18. INNOHEP [Concomitant]
     Active Substance: TINZAPARIN SODIUM
     Indication: Thrombosis
     Dosage: 0.60 MILLIGRAM, QD
     Route: 042
     Dates: start: 20160304, end: 20160319
  19. HUMIRA [Concomitant]
     Active Substance: ADALIMUMAB
     Indication: Crohn^s disease
     Dosage: 40 MILLIGRAM, 1/WEEK
     Route: 058
     Dates: start: 20130706
  20. CHOLECALCIFEROL [Concomitant]
     Active Substance: CHOLECALCIFEROL
     Indication: Prophylaxis
     Dosage: 1 DOSAGE FORM
     Route: 048
  21. VITAMIN B12 [Concomitant]
     Active Substance: CYANOCOBALAMIN
     Indication: Prophylaxis
     Dosage: 1 DOSAGE FORM
     Route: 030
  22. URSODIOL [Concomitant]
     Active Substance: URSODIOL
     Indication: Gastrointestinal disorder prophylaxis
     Dosage: 500 MILLIGRAM, BID
     Route: 048
  23. CODEINE PHOSPHATE [Concomitant]
     Active Substance: CODEINE PHOSPHATE
     Indication: Prophylaxis
     Dosage: 80 MILLIGRAM
     Route: 048
  24. GUSELKUMAB [Concomitant]
     Active Substance: GUSELKUMAB
     Indication: Psoriasis
     Dosage: 1 MILLIGRAM
     Route: 058
     Dates: start: 201901

REACTIONS (2)
  - Hyperleukocytosis [Not Recovered/Not Resolved]
  - Cell death [Not Recovered/Not Resolved]

NARRATIVE: CASE EVENT DATE: 20181201
